FAERS Safety Report 16103244 (Version 1)
Quarter: 2019Q1

REPORT INFORMATION
  Report Type: Spontaneous
  Country: TW (occurrence: TW)
  Receive Date: 20190322
  Receipt Date: 20190322
  Transmission Date: 20190418
  Serious: Yes (Death, Other)
  Sender: FDA-Public Use
  Company Number: TW-ASTELLAS-2019US011464

PATIENT
  Age: 51 Year
  Sex: Female

DRUGS (3)
  1. TARCEVA [Suspect]
     Active Substance: ERLOTINIB HYDROCHLORIDE
     Indication: LUNG NEOPLASM MALIGNANT
     Dosage: UNK UNK, UNKNOWN FREQ.
     Route: 065
     Dates: start: 201705
  2. ENTECAVIR. [Concomitant]
     Active Substance: ENTECAVIR
     Indication: PRODUCT USED FOR UNKNOWN INDICATION
     Route: 065
     Dates: start: 20170516
  3. CRIZOTINIB [Suspect]
     Active Substance: CRIZOTINIB
     Indication: LUNG NEOPLASM MALIGNANT
     Dosage: UNK UNK, UNKNOWN FREQ.
     Route: 065
     Dates: start: 20170629

REACTIONS (11)
  - Blood glucose fluctuation [Unknown]
  - Weight decreased [Unknown]
  - Dyspnoea exertional [Unknown]
  - Tachypnoea [Unknown]
  - Glomerular filtration rate increased [Unknown]
  - Blood creatinine increased [Unknown]
  - Performance status decreased [Unknown]
  - Blood urea increased [Unknown]
  - Hepatic failure [Fatal]
  - Hepatitis B reactivation [Unknown]
  - Hypophagia [Unknown]

NARRATIVE: CASE EVENT DATE: 201705
